FAERS Safety Report 10954916 (Version 4)
Quarter: 2017Q3

REPORT INFORMATION
  Report Type: Report from Study
  Country: BR (occurrence: BR)
  Receive Date: 20150325
  Receipt Date: 20170829
  Transmission Date: 20171127
  Serious: Yes (Other)
  Sender: FDA-Public Use
  Company Number: PHHY2015BR034751

PATIENT
  Age: 71 Year
  Sex: Female
  Weight: 68 kg

DRUGS (7)
  1. OMEPRAZOLE. [Concomitant]
     Active Substance: OMEPRAZOLE
     Indication: PROPHYLAXIS
     Dosage: 1 DF, QD
     Route: 048
     Dates: start: 2005
  2. SOTACOR [Concomitant]
     Active Substance: SOTALOL HYDROCHLORIDE
     Indication: ARRHYTHMIA
     Dosage: 1 DF, QD
     Route: 048
     Dates: start: 2005
  3. ASPIRIN. [Concomitant]
     Active Substance: ASPIRIN
     Indication: ANTICOAGULANT THERAPY
     Dosage: 1 DF, QD
     Route: 048
     Dates: start: 2005
  4. ACLASTA [Suspect]
     Active Substance: ZOLEDRONIC ACID
     Indication: OSTEOPOROSIS
     Dosage: 1 DF (5 MG/100 ML), Q12MO
     Route: 042
     Dates: start: 201407
  5. VIVACOR [Concomitant]
     Active Substance: BISOPROLOL FUMARATE
     Indication: BLOOD CHOLESTEROL INCREASED
     Dosage: 1 DF, QD
     Route: 048
  6. SERTRALINE [Concomitant]
     Active Substance: SERTRALINE HYDROCHLORIDE
     Indication: FIBROMYALGIA
     Dosage: 2 DF, QD
     Route: 048
     Dates: start: 201412
  7. ADDERA [Concomitant]
     Active Substance: CHOLECALCIFEROL
     Indication: OSTEOPOROSIS
     Dosage: 1 DF, QD
     Route: 048

REACTIONS (9)
  - Weight increased [Not Recovered/Not Resolved]
  - Foot fracture [Recovering/Resolving]
  - Bone formation decreased [Unknown]
  - Fibromyalgia [Recovering/Resolving]
  - Bone pain [Unknown]
  - Splenic artery aneurysm [Recovering/Resolving]
  - Pain in extremity [Not Recovered/Not Resolved]
  - Peripheral swelling [Not Recovered/Not Resolved]
  - Rib fracture [Not Recovered/Not Resolved]

NARRATIVE: CASE EVENT DATE: 201411
